FAERS Safety Report 10266156 (Version 2)
Quarter: 2014Q2

REPORT INFORMATION
  Report Type: Spontaneous
  Country: US (occurrence: US)
  Receive Date: 20140627
  Receipt Date: 20140627
  Transmission Date: 20141212
  Serious: Yes (Hospitalization, Other)
  Sender: FDA-Public Use
  Company Number: US-CELGENEUS-163-21880-14042347

PATIENT
  Age: 69 Year
  Sex: Male

DRUGS (6)
  1. REVLIMID [Suspect]
     Indication: PLASMA CELL MYELOMA
     Dosage: 7.5 MILLIGRAM
     Route: 048
     Dates: start: 20140214
  2. REVLIMID [Suspect]
     Dosage: 10 MILLIGRAM
     Route: 048
     Dates: start: 20140411
  3. ZYLOPRIM [Concomitant]
     Indication: PRODUCT USED FOR UNKNOWN INDICATION
     Dosage: 300 MILLIGRAM
     Route: 065
     Dates: start: 20131010, end: 20131210
  4. NORVASC [Concomitant]
     Indication: HYPERTENSION
     Dosage: 25 MILLIGRAM
     Route: 065
     Dates: start: 20131001
  5. ATIVAN [Concomitant]
     Indication: ANXIETY
     Dosage: 1 MILLIGRAM
     Route: 065
     Dates: start: 20140417
  6. TAMSULOSIN [Concomitant]
     Indication: ANXIETY
     Dosage: .4 MILLIGRAM
     Route: 065
     Dates: start: 20140403

REACTIONS (3)
  - Mental disorder [Unknown]
  - Renal failure [Unknown]
  - Fatigue [Unknown]
